FAERS Safety Report 25003455 (Version 1)
Quarter: 2025Q1

REPORT INFORMATION
  Report Type: Spontaneous
  Country: US (occurrence: US)
  Receive Date: 20250224
  Receipt Date: 20250224
  Transmission Date: 20250409
  Serious: No
  Sender: JOHNSON AND JOHNSON
  Company Number: US-JNJFOC-20250248399

PATIENT

DRUGS (2)
  1. SPRAVATO [Suspect]
     Active Substance: ESKETAMINE
     Indication: Product used for unknown indication
  2. KLONOPIN [Concomitant]
     Active Substance: CLONAZEPAM

REACTIONS (4)
  - Drug monitoring procedure not performed [Unknown]
  - Product communication issue [Unknown]
  - Product monitoring error [Unknown]
  - Euphoric mood [Unknown]
